FAERS Safety Report 4498703-6 (Version None)
Quarter: 2004Q4

REPORT INFORMATION
  Report Type: 
  Country: None (occurrence: None)
  Receive Date: 20041108
  Receipt Date: 20041022
  Transmission Date: 20050328
  Serious: Yes (Hospitalization)
  Sender: FDA-Public Use
  Company Number: A03200403542

PATIENT
  Age: 74 Year
  Sex: Male

DRUGS (5)
  1. UROXATRAL [Suspect]
     Dosage: ORAL
     Route: 048
  2. RAMIPRIL [Concomitant]
  3. ISOSORBIDE [Concomitant]
  4. WARFARIN SODIUM [Concomitant]
  5. GABAPENTIN [Concomitant]

REACTIONS (2)
  - HYPERTENSION [None]
  - MYOCARDIAL INFARCTION [None]
